FAERS Safety Report 4743875-9 (Version None)
Quarter: 2005Q3

REPORT INFORMATION
  Report Type: 
  Country: None (occurrence: None)
  Receive Date: 20050809
  Receipt Date: 20050729
  Transmission Date: 20060218
  Serious: Yes (Other)
  Sender: FDA-Public Use
  Company Number: GBWYE868329JUL05

PATIENT
  Age: 56 Year
  Sex: Female

DRUGS (7)
  1. METHOTREXATE [Suspect]
  2. AUGMENTIN [Suspect]
  3. CO-DYDRAMOL (DIHYDROCODEINE BITARTRATE/PARACETAMOL) [Suspect]
  4. FLUOXETINE [Suspect]
  5. HUMIRA [Suspect]
     Route: 051
  6. PREMARIN [Suspect]
  7. VIOXX [Suspect]
     Route: 048

REACTIONS (1)
  - EYE HAEMORRHAGE [None]
